FAERS Safety Report 15402808 (Version 1)
Quarter: 2018Q3

REPORT INFORMATION
  Report Type: Spontaneous
  Country: US (occurrence: US)
  Receive Date: 20180919
  Receipt Date: 20180919
  Transmission Date: 20181010
  Serious: No
  Sender: FDA-Public Use
  Company Number: US-AMNEAL PHARMACEUTICALS-2018AMN00094

PATIENT
  Age: 55 Year
  Sex: Female
  Weight: 62.59 kg

DRUGS (6)
  1. VALIUM [Concomitant]
     Active Substance: DIAZEPAM
  2. HYDROCODONE AND ACETAMINOPHEN [Suspect]
     Active Substance: ACETAMINOPHEN\HYDROCODONE
     Indication: ARTHRALGIA
     Dosage: 1 TABLETS, 5X/DAY
     Dates: start: 20180215, end: 20180216
  3. NEXIUM GENERIC [Concomitant]
  4. LEXAPRO GENERIC [Concomitant]
     Active Substance: ESCITALOPRAM OXALATE
     Dosage: UNK
  5. HYDROCODONE AND ACETAMINOPHEN [Suspect]
     Active Substance: ACETAMINOPHEN\HYDROCODONE
     Indication: NECK PAIN
     Dosage: 1 TABLETS, 5X/DAY
     Dates: start: 20180211, end: 20180213
  6. HYDROCODONE AND ACETAMINOPHEN [Suspect]
     Active Substance: ACETAMINOPHEN\HYDROCODONE
     Indication: OSTEOPOROSIS

REACTIONS (4)
  - Flatulence [Not Recovered/Not Resolved]
  - Abdominal pain upper [Not Recovered/Not Resolved]
  - Diarrhoea [Not Recovered/Not Resolved]
  - Abdominal pain [Not Recovered/Not Resolved]

NARRATIVE: CASE EVENT DATE: 20180211
